FAERS Safety Report 15027932 (Version 4)
Quarter: 2018Q4

REPORT INFORMATION
  Report Type: Report from Study
  Country: US (occurrence: US)
  Receive Date: 20180619
  Receipt Date: 20181003
  Transmission Date: 20190204
  Serious: Yes (Other)
  Sender: FDA-Public Use
  Company Number: US-ROCHE-2136660

PATIENT
  Age: 31 Year
  Sex: Female
  Weight: 60 kg

DRUGS (4)
  1. OMEGA 3 + 6 [Concomitant]
     Dosage: 1 CAPSULE
     Route: 065
     Dates: start: 20140429
  2. OCRELIZUMAB. [Suspect]
     Active Substance: OCRELIZUMAB
     Indication: RELAPSING-REMITTING MULTIPLE SCLEROSIS
     Dosage: INITIAL DOSE OF TWO 300-MG IV INFUSIONS (600 MG TOTAL) SEPARATED BY 14 DAYS (ON DAYS 1 AND 15) FOLLO
     Route: 042
     Dates: start: 20161121
  3. IBUPROFEN. [Concomitant]
     Active Substance: IBUPROFEN
     Route: 065
     Dates: start: 2005
  4. VITAMIN D3 [Concomitant]
     Active Substance: CHOLECALCIFEROL
     Route: 065
     Dates: start: 20140429

REACTIONS (1)
  - Adenocarcinoma of the cervix [Recovered/Resolved]

NARRATIVE: CASE EVENT DATE: 20180417
